FAERS Safety Report 10412846 (Version 4)
Quarter: 2014Q4

REPORT INFORMATION
  Report Type: Spontaneous
  Country: CH (occurrence: CH)
  Receive Date: 20140827
  Receipt Date: 20141022
  Transmission Date: 20150528
  Serious: Yes (Death, Hospitalization, Other)
  Sender: FDA-Public Use
  Company Number: CH-JNJFOC-20140813729

PATIENT
  Age: 63 Year
  Sex: Male
  Weight: 67.2 kg

DRUGS (17)
  1. BACTRIM [Concomitant]
     Active Substance: SULFAMETHOXAZOLE\TRIMETHOPRIM
  2. DIFLUCAN [Concomitant]
     Active Substance: FLUCONAZOLE
  3. NOVALGIN [Concomitant]
     Active Substance: METAMIZOLE SODIUM
     Indication: PYREXIA
  4. LEVICO [Concomitant]
  5. ARGENTUM/ECHINACEA [Concomitant]
  6. IBRUTINIB [Suspect]
     Active Substance: IBRUTINIB
     Indication: MANTLE CELL LYMPHOMA
     Route: 065
     Dates: start: 20140527, end: 20140906
  7. VALTREX [Concomitant]
     Active Substance: VALACYCLOVIR HYDROCHLORIDE
  8. MAGNESIOCARD [Concomitant]
     Active Substance: MAGNESIUM ASPARTATE HYDROCHLORIDE
  9. STILNOX [Concomitant]
     Active Substance: ZOLPIDEM TARTRATE
  10. GENTIAN [Concomitant]
     Active Substance: GENTIANA LUTEA ROOT
  11. DAFALGAN [Concomitant]
     Active Substance: ACETAMINOPHEN
     Indication: PYREXIA
  12. MORPHINE [Concomitant]
     Active Substance: MORPHINE
     Indication: DYSPEPSIA
  13. ESOMEPRAZOL [Concomitant]
     Active Substance: ESOMEPRAZOLE
  14. IBRUTINIB [Suspect]
     Active Substance: IBRUTINIB
     Indication: CHRONIC LYMPHOCYTIC LEUKAEMIA
     Route: 065
     Dates: start: 20140527, end: 20140906
  15. MEPERIDINE [Concomitant]
     Active Substance: MEPERIDINE
     Indication: CHILLS
  16. SIBIUM [Concomitant]
  17. NOVALGIN [Concomitant]
     Active Substance: METAMIZOLE SODIUM
     Indication: PAIN

REACTIONS (4)
  - Mantle cell lymphoma [Fatal]
  - Blast cell count increased [Unknown]
  - Procalcitonin increased [Not Recovered/Not Resolved]
  - Infection [Not Recovered/Not Resolved]

NARRATIVE: CASE EVENT DATE: 20141001
